FAERS Safety Report 15979834 (Version 1)
Quarter: 2019Q1

REPORT INFORMATION
  Report Type: Spontaneous
  Country: GB (occurrence: GB)
  Receive Date: 20190219
  Receipt Date: 20190219
  Transmission Date: 20190418
  Serious: Yes (Other)
  Sender: FDA-Public Use
  Company Number: GB-ACCORD-107547

PATIENT
  Age: 59 Year
  Sex: Male
  Weight: 93 kg

DRUGS (9)
  1. AMLODIPINE [Concomitant]
     Active Substance: AMLODIPINE BESYLATE
     Dosage: IN THE MORNING
     Dates: start: 20180412
  2. AMITRIPTYLINE [Suspect]
     Active Substance: AMITRIPTYLINE
     Indication: PRODUCT USED FOR UNKNOWN INDICATION
     Dates: start: 20180703
  3. RAMIPRIL. [Concomitant]
     Active Substance: RAMIPRIL
     Dosage: AT NIGHT
     Dates: start: 20170712, end: 20180509
  4. COCODAMOL [Concomitant]
     Active Substance: ACETAMINOPHEN\CODEINE PHOSPHATE
     Dosage: TAKE 1 OR 2 4 TIMES/DAY
     Dates: start: 20180524, end: 20180605
  5. BENDROFLUMETHIAZIDE [Concomitant]
     Active Substance: BENDROFLUMETHIAZIDE
     Dosage: EACH MORNING
     Dates: start: 20180412
  6. INVITA-D3 [Concomitant]
     Dosage: FOR THREE DAYS
     Dates: start: 20180530, end: 20180602
  7. DICLOFENAC [Concomitant]
     Active Substance: DICLOFENAC
     Dosage: APPLY
     Dates: start: 20180509, end: 20180518
  8. DOXAZOSIN [Concomitant]
     Active Substance: DOXAZOSIN\DOXAZOSIN MESYLATE
     Dosage: AT NIGHT
     Dates: start: 20160126
  9. FENBID [Concomitant]
     Active Substance: IBUPROFEN
     Dosage: APPLY
     Dates: start: 20180524, end: 20180603

REACTIONS (2)
  - Body temperature increased [Unknown]
  - Rash [Recovering/Resolving]

NARRATIVE: CASE EVENT DATE: 20180703
